FAERS Safety Report 7163815-5 (Version None)
Quarter: 2010Q4

REPORT INFORMATION
  Report Type: 
  Country: None (occurrence: None)
  Receive Date: 20101202
  Receipt Date: 20101119
  Transmission Date: 20110411
  Serious: Yes (Hospitalization)
  Sender: FDA-Public Use
  Company Number: 022333

PATIENT
  Sex: Female

DRUGS (1)
  1. CIMZIA [Suspect]
     Indication: CROHN'S DISEASE
     Dosage: UNKNOWN DOSE SUBCUTANEOUS
     Route: 058
     Dates: start: 20090515

REACTIONS (5)
  - INTESTINAL STENOSIS [None]
  - MEDICAL DEVICE COMPLICATION [None]
  - MUSCLE SPASMS [None]
  - NAUSEA [None]
  - VOMITING [None]
